FAERS Safety Report 23255911 (Version 2)
Quarter: 2024Q1

REPORT INFORMATION
  Report Type: Report from Study
  Country: US (occurrence: US)
  Receive Date: 20231204
  Receipt Date: 20240111
  Transmission Date: 20240410
  Serious: Yes (Other)
  Sender: FDA-Public Use
  Company Number: US-UCBSA-2023056395

PATIENT
  Sex: Female

DRUGS (2)
  1. CERTOLIZUMAB PEGOL [Suspect]
     Active Substance: CERTOLIZUMAB PEGOL
     Indication: Product used for unknown indication
     Dosage: 400 MILLIGRAM, EV 2 WEEKS(QOW)
     Route: 058
     Dates: start: 20230109
  2. CERTOLIZUMAB PEGOL [Suspect]
     Active Substance: CERTOLIZUMAB PEGOL
     Dosage: 400 MILLIGRAM, EV 4 WEEKS
     Route: 058

REACTIONS (14)
  - Rectal haemorrhage [Unknown]
  - Spinal cord haematoma [Unknown]
  - Spinal osteoarthritis [Unknown]
  - Ovarian cyst [Unknown]
  - Urinary tract infection [Recovered/Resolved]
  - Blood urine present [Unknown]
  - Injection site pain [Unknown]
  - Abdominal distension [Unknown]
  - Hypoaesthesia [Unknown]
  - Fall [Unknown]
  - Weight increased [Unknown]
  - Back pain [Unknown]
  - Condition aggravated [Unknown]
  - Drug ineffective [Unknown]

NARRATIVE: CASE EVENT DATE: 20230101
